FAERS Safety Report 9568956 (Version 2)
Quarter: 2013Q3

REPORT INFORMATION
  Report Type: Spontaneous
  Country: US (occurrence: US)
  Receive Date: 20130930
  Receipt Date: 20130930
  Transmission Date: 20140515
  Serious: Yes (Other)
  Sender: FDA-Public Use
  Company Number: US-AMGEN-USASP2013057404

PATIENT
  Age: 36 Year
  Sex: Male
  Weight: 81.18 kg

DRUGS (6)
  1. ENBREL [Suspect]
     Indication: RHEUMATOID ARTHRITIS
     Dosage: 50 MG, QWK
     Route: 058
     Dates: start: 20130523
  2. METHOTREXATE [Concomitant]
     Indication: RHEUMATOID ARTHRITIS
     Dosage: 20 MG, QWK
     Route: 048
     Dates: start: 20120702
  3. PREDNISONE [Concomitant]
     Indication: RHEUMATOID ARTHRITIS
     Dosage: UNK
  4. METHIMAZOLE [Concomitant]
     Indication: THYROID DISORDER
     Dosage: UNK
     Route: 048
  5. DIGOXIN [Concomitant]
     Dosage: UNK
  6. COUMADIN                           /00014802/ [Concomitant]
     Dosage: UNK

REACTIONS (4)
  - Tooth infection [Recovered/Resolved]
  - Arthritis [Unknown]
  - Dental necrosis [Unknown]
  - Tooth abscess [Unknown]
